FAERS Safety Report 9323200 (Version 2)
Quarter: 2013Q3

REPORT INFORMATION
  Report Type: Spontaneous
  Country: US (occurrence: US)
  Receive Date: 20130603
  Receipt Date: 20130724
  Transmission Date: 20140515
  Serious: Yes (Other)
  Sender: FDA-Public Use
  Company Number: US-PFIZER INC-2013167236

PATIENT
  Sex: Female

DRUGS (2)
  1. ADVIL CONGESTION RELIEF [Suspect]
     Indication: SINUS DISORDER
     Dosage: UNK
     Route: 048
     Dates: start: 20130528, end: 20130529
  2. ADVIL CONGESTION RELIEF [Suspect]
     Indication: HEADACHE

REACTIONS (5)
  - Choking [Unknown]
  - Productive cough [Unknown]
  - Dry mouth [Unknown]
  - Dry throat [Unknown]
  - Drug ineffective [Unknown]
